FAERS Safety Report 5941472-0 (Version None)
Quarter: 2008Q4

REPORT INFORMATION
  Report Type: 
  Country: None (occurrence: None)
  Receive Date: 20081105
  Receipt Date: 20081023
  Transmission Date: 20090506
  Serious: Yes (Other)
  Sender: FDA-Public Use
  Company Number: US-BAYER-200827463NA

PATIENT
  Age: 28 Year
  Sex: Female

DRUGS (8)
  1. CAMPATH [Suspect]
     Indication: MULTIPLE SCLEROSIS
     Dosage: TOTAL DAILY DOSE: 12 MG
     Route: 042
     Dates: start: 20030602, end: 20030606
  2. CAMPATH [Suspect]
     Dosage: TOTAL DAILY DOSE: 12 MG
     Route: 042
     Dates: start: 20040601, end: 20040603
  3. AMBIEN [Concomitant]
     Dates: start: 20050501
  4. PREDNISONE TAB [Concomitant]
     Dates: start: 20050501, end: 20050507
  5. ZITHROMAX [Concomitant]
  6. ORTHO TRI-CYCLEN LO [Concomitant]
     Dates: end: 20060501
  7. SOLU-MEDROL [Concomitant]
     Dates: start: 20070301, end: 20070401
  8. IMMUNE GLOBULIN INTRAVENOUS (HUMAN) [Concomitant]
     Dates: start: 20070601, end: 20070701

REACTIONS (8)
  - ABORTION MISSED [None]
  - BASEDOW'S DISEASE [None]
  - DRUG EXPOSURE DURING PREGNANCY [None]
  - ENDOCRINE OPHTHALMOPATHY [None]
  - LIVER FUNCTION TEST ABNORMAL [None]
  - MULTIPLE SCLEROSIS RELAPSE [None]
  - OPTIC NEURITIS [None]
  - PREGNANCY [None]
